FAERS Safety Report 11100536 (Version 1)
Quarter: 2015Q2

REPORT INFORMATION
  Report Type: Spontaneous
  Country: US (occurrence: US)
  Receive Date: 20150508
  Receipt Date: 20150508
  Transmission Date: 20150821
  Serious: Yes (Other)
  Sender: FDA-Public Use
  Company Number: US-SA-2015SA059420

PATIENT
  Age: 78 Year
  Sex: Female
  Weight: 63.9 kg

DRUGS (18)
  1. JUXTAPID [Suspect]
     Active Substance: LOMITAPIDE MESYLATE
     Indication: TYPE IIA HYPERLIPIDAEMIA
     Route: 065
     Dates: start: 201310
  2. CRESTOR [Concomitant]
     Active Substance: ROSUVASTATIN CALCIUM
  3. FLORA-Q [Concomitant]
  4. ROZEREM [Concomitant]
     Active Substance: RAMELTEON
     Dosage: 8MG
  5. PEPCID [Concomitant]
     Active Substance: FAMOTIDINE
     Dosage: 40MG
  6. UBIDECARENONE [Concomitant]
     Active Substance: UBIDECARENONE
  7. TOCOPHEROL [Concomitant]
     Active Substance: TOCOPHEROL
  8. BIOTIN [Concomitant]
     Active Substance: BIOTIN
     Dosage: 5000MCG
  9. LOSARTAN [Concomitant]
     Active Substance: LOSARTAN
     Dosage: 25MG
  10. LISINOPRIL. [Concomitant]
     Active Substance: LISINOPRIL
  11. NITROSTAT [Concomitant]
     Active Substance: NITROGLYCERIN
     Dosage: 0.4MG
  12. VITAMIN E [Concomitant]
     Active Substance: .ALPHA.-TOCOPHEROL
  13. PLAVIX [Suspect]
     Active Substance: CLOPIDOGREL BISULFATE
     Route: 065
     Dates: end: 20141027
  14. BABY ASPIRIN [Suspect]
     Active Substance: ASPIRIN
     Dosage: 3XW
     Route: 065
  15. CARVEDILOL. [Concomitant]
     Active Substance: CARVEDILOL
  16. MAGNESIUM CARBONATE [Concomitant]
     Active Substance: MAGNESIUM CARBONATE
  17. CALCIUM GLUCONATE. [Concomitant]
     Active Substance: CALCIUM GLUCONATE
  18. ZINC OXIDE. [Concomitant]
     Active Substance: ZINC OXIDE

REACTIONS (19)
  - Asthenia [Unknown]
  - Epistaxis [Unknown]
  - Haemorrhage [Unknown]
  - Burning sensation [Recovering/Resolving]
  - Diarrhoea [Recovered/Resolved]
  - Rash [Unknown]
  - Back pain [Not Recovered/Not Resolved]
  - Nausea [Unknown]
  - Alopecia [Not Recovered/Not Resolved]
  - Hypersensitivity [Not Recovered/Not Resolved]
  - Flatulence [Unknown]
  - Bone pain [Unknown]
  - Eosinophil count increased [Unknown]
  - Vitamin B12 increased [Unknown]
  - Milk allergy [Unknown]
  - Pruritus [Unknown]
  - Blood test abnormal [Not Recovered/Not Resolved]
  - Weight decreased [Unknown]
  - Skin irritation [Not Recovered/Not Resolved]

NARRATIVE: CASE EVENT DATE: 20140307
